FAERS Safety Report 7096033-X (Version None)
Quarter: 2010Q4

REPORT INFORMATION
  Report Type: 
  Country: None (occurrence: None)
  Receive Date: 20101111
  Receipt Date: 20101030
  Transmission Date: 20110411
  Serious: Yes (Other)
  Sender: FDA-Public Use
  Company Number: PHHY2010BR74186

PATIENT
  Sex: Female

DRUGS (1)
  1. TEGRETOL-XR [Suspect]
     Indication: CONVULSION
     Dosage: 200 MG
     Dates: start: 20040801

REACTIONS (4)
  - ABDOMINAL HERNIA [None]
  - INTESTINAL OPERATION [None]
  - PARAESTHESIA [None]
  - TRAUMATIC LUNG INJURY [None]
